FAERS Safety Report 17297427 (Version 2)
Quarter: 2020Q1

REPORT INFORMATION
  Report Type: Spontaneous
  Country: CM (occurrence: CM)
  Receive Date: 20200121
  Receipt Date: 20200203
  Transmission Date: 20200409
  Serious: Yes (Hospitalization)
  Sender: FDA-Public Use
  Company Number: NVSC2020CM011737

PATIENT
  Age: 1 Year
  Sex: Male

DRUGS (3)
  1. CURAM [Suspect]
     Active Substance: AMOXICILLIN\CLAVULANATE POTASSIUM
     Indication: OTITIS MEDIA ACUTE
     Dosage: 11 KG, TID
     Route: 048
  2. FLEMING [Concomitant]
     Indication: PRODUCT USED FOR UNKNOWN INDICATION
     Route: 065
  3. ARTESUNATE [Concomitant]
     Active Substance: ARTESUNATE
     Indication: MALARIA
     Route: 065

REACTIONS (1)
  - Hyperthermia [Recovering/Resolving]
